FAERS Safety Report 7411215-2 (Version None)
Quarter: 2011Q2

REPORT INFORMATION
  Report Type: 
  Country: None (occurrence: None)
  Receive Date: 20110413
  Receipt Date: 20110331
  Transmission Date: 20111010
  Serious: No
  Sender: FDA-Public Use
  Company Number: US-RB-020502-11

PATIENT
  Age: 48 Year
  Sex: Male

DRUGS (2)
  1. SUBOXONE [Suspect]
     Indication: DRUG DEPENDENCE
     Dosage: SUBLINGUAL FILM
     Route: 060
     Dates: start: 20110101, end: 20110301
  2. SUBOXONE [Suspect]
     Dosage: SUBLINIGUAL FILM
     Route: 060
     Dates: start: 20110301

REACTIONS (9)
  - EUPHORIC MOOD [None]
  - PHOBIA [None]
  - SOMNOLENCE [None]
  - LOSS OF LIBIDO [None]
  - HYPOAESTHESIA ORAL [None]
  - DRY MOUTH [None]
  - VOMITING [None]
  - PARAESTHESIA [None]
  - DYSURIA [None]
